FAERS Safety Report 18513285 (Version 1)
Quarter: 2020Q4

REPORT INFORMATION
  Report Type: Report from Study
  Country: None (occurrence: US)
  Receive Date: 20201118
  Receipt Date: 20201118
  Transmission Date: 20210114
  Serious: Yes (Other)
  Sender: FDA-Public Use
  Company Number: US-ABBVIE-20K-163-3650617-00

PATIENT
  Sex: Female

DRUGS (1)
  1. HUMIRA [Suspect]
     Active Substance: ADALIMUMAB
     Indication: PRODUCT USED FOR UNKNOWN INDICATION
     Dosage: CITRATE FREE
     Route: 058

REACTIONS (9)
  - Myocardial infarction [Recovered/Resolved]
  - Condition aggravated [Recovered/Resolved]
  - Headache [Recovering/Resolving]
  - Neoplasm swelling [Not Recovered/Not Resolved]
  - Arthritis [Recovering/Resolving]
  - Nausea [Unknown]
  - Back pain [Recovered/Resolved]
  - Weight fluctuation [Recovering/Resolving]
  - Stress [Unknown]
